FAERS Safety Report 17438464 (Version 1)
Quarter: 2020Q1

REPORT INFORMATION
  Report Type: Spontaneous
  Country: DE (occurrence: DE)
  Receive Date: 20200220
  Receipt Date: 20200220
  Transmission Date: 20200409
  Serious: Yes (Other)
  Sender: FDA-Public Use
  Company Number: DE-TEVA-2020-DE-1187148

PATIENT
  Age: 61 Year
  Sex: Female

DRUGS (13)
  1. TAXOTERE [Suspect]
     Active Substance: DOCETAXEL
     Indication: BREAST CANCER FEMALE
     Dosage: 4 TIMES IN COMBINATION WITH HERCEPTIN
     Route: 065
     Dates: start: 20180711, end: 20190107
  2. TIANEURAX 12.5MG [Concomitant]
     Route: 065
  3. METOHEXAL SUCC 47.5 MG [Concomitant]
     Route: 065
  4. EPIRUBICIN [Suspect]
     Active Substance: EPIRUBICIN
     Dosage: 4 TIMES IN COMBINATION WITH CYCLOPHOSPHAMID
     Route: 065
     Dates: start: 20180711, end: 20190107
  5. BRINTELLIX 10MG [Concomitant]
     Route: 065
  6. ELONTRIL 150MG TABLETTEN [Concomitant]
     Route: 065
  7. MILNANEURAX 25MG [Concomitant]
     Route: 065
  8. CEFPODOXIM 200 MG [Concomitant]
     Route: 065
  9. HERCEPTIN [Suspect]
     Active Substance: TRASTUZUMAB
     Indication: BREAST CANCER FEMALE
     Dosage: 4 TIMES IN COMBINATION WITH TAXOTERE
     Route: 065
     Dates: start: 20180711, end: 20190107
  10. MOVIPREP [Concomitant]
     Active Substance: ASCORBIC ACID\POLYETHYLENE GLYCOL 3350\POTASSIUM CHLORIDE\SODIUM ASCORBATE\SODIUM CHLORIDE\SODIUM SULFATE
     Route: 065
  11. PAROXETIN NEURAX 20MG [Concomitant]
     Route: 065
  12. CYCLOPHOSPHAMID [Suspect]
     Active Substance: CYCLOPHOSPHAMIDE
     Dosage: 4 TIMES IN COMBINATION WITH EPIRUBICIN
     Route: 065
     Dates: start: 20180711, end: 20190107
  13. SERTRALIN NEURAX 100 MG [Concomitant]
     Route: 065

REACTIONS (3)
  - Aortic dilatation [Unknown]
  - Aortic valve incompetence [Unknown]
  - Ejection fraction decreased [Unknown]

NARRATIVE: CASE EVENT DATE: 20191001
